FAERS Safety Report 8181283-1 (Version None)
Quarter: 2012Q1

REPORT INFORMATION
  Report Type: 
  Country: None (occurrence: None)
  Receive Date: 20120302
  Receipt Date: 20120127
  Transmission Date: 20120608
  Serious: Yes (Hospitalization, Other)
  Sender: FDA-Public Use
  Company Number: FR-PFIZER INC-K201001027

PATIENT
  Age: 80 Year
  Sex: Male

DRUGS (14)
  1. RAMIPRIL [Suspect]
     Indication: HYPERTENSION
     Dosage: 5 MG, 1X/DAY
     Route: 048
  2. FUROSEMIDE [Concomitant]
     Dosage: 40 MG, UNK
  3. TIOTROPIUM BROMIDE [Concomitant]
     Dosage: UNK
  4. ALDACTONE [Suspect]
     Indication: CARDIAC FAILURE
     Dosage: 25 MG, 1X/DAY
     Route: 048
     Dates: end: 20100708
  5. ATORVASTATIN [Concomitant]
     Dosage: 20 MG, UNK
  6. LACTULOSE [Concomitant]
     Dosage: 2 DF, UNK
  7. PREVISCAN [Concomitant]
     Dosage: UNK, 3/4 TABLET QD
  8. GALENIC /FLUTICASONE/SALMETEROL/ [Concomitant]
     Dosage: 250 UG, UNK
  9. BISOPROLOL FUMARATE [Suspect]
     Dosage: 7.5 MG, 1X/DAY
  10. IVABRADINE [Suspect]
     Indication: ANGINA PECTORIS
     Dosage: 5 MG, 2X/DAY
     Route: 048
     Dates: start: 20100401, end: 20100708
  11. CLARITIN [Concomitant]
     Dosage: 10 MG, UNK
  12. ACETAMINOPHEN [Concomitant]
     Dosage: UNK
  13. PREVISCAN [Concomitant]
     Dosage: 20 MG, UNK
  14. BISOPROLOL FUMARATE [Suspect]
     Indication: CARDIAC FAILURE
     Dosage: 2.5 MG, 1X/DAY
     Route: 048
     Dates: start: 20100401, end: 20100101

REACTIONS (6)
  - CHEST PAIN [None]
  - ATRIOVENTRICULAR BLOCK COMPLETE [None]
  - DYSPNOEA [None]
  - RENAL FAILURE [None]
  - FATIGUE [None]
  - HYPERKALAEMIA [None]
